FAERS Safety Report 24594226 (Version 2)
Quarter: 2024Q4

REPORT INFORMATION
  Report Type: Spontaneous
  Country: US (occurrence: US)
  Receive Date: 20241108
  Receipt Date: 20241211
  Transmission Date: 20250115
  Serious: No
  Sender: NOVARTIS
  Company Number: US-002147023-NVSC2024US213286

PATIENT
  Sex: Female

DRUGS (2)
  1. COSENTYX [Suspect]
     Active Substance: SECUKINUMAB
     Indication: Product used for unknown indication
     Dosage: 300 MG, QMO (INJECTION) (300MG/2ML)
     Route: 058
  2. COSENTYX [Suspect]
     Active Substance: SECUKINUMAB

REACTIONS (5)
  - Product dose omission issue [Unknown]
  - Product packaging issue [Unknown]
  - Device leakage [Unknown]
  - Accidental exposure to product [Unknown]
  - Wrong technique in device usage process [Unknown]

NARRATIVE: CASE EVENT DATE: 20241031
